FAERS Safety Report 5106732-4 (Version None)
Quarter: 2006Q3

REPORT INFORMATION
  Report Type: 
  Country: None (occurrence: None)
  Receive Date: 20060731
  Receipt Date: 20051101
  Transmission Date: 20061208
  Serious: Yes (Other)
  Sender: FDA-Public Use
  Company Number: US-JNJFOC-20050803339

PATIENT
  Age: 53 Year
  Sex: Male
  Weight: 97.977 kg

DRUGS (16)
  1. RISPERDAL [Suspect]
     Indication: AUTISM
     Dosage: SEE IMAGE
     Route: 048
     Dates: end: 20030701
  2. RISPERDAL [Suspect]
     Indication: AUTISM
     Dosage: SEE IMAGE
     Route: 048
     Dates: start: 20030721, end: 20050501
  3. RISPERDAL [Suspect]
     Indication: AUTISM
     Dosage: SEE IMAGE
     Route: 048
     Dates: start: 20030101
  4. LORAZEPAM (LORAZEPAM) TABLETS [Concomitant]
  5. GLUCOPHAGE (METFORMIN HYDROCHLORIDE) TABLET [Concomitant]
  6. LIPITOR [Concomitant]
  7. SENOKOT (SENNA FRUIT) TABLETS [Concomitant]
  8. ATENOLOL [Concomitant]
  9. KETOCONAZOLE SHAMPOO (KETOCONAZOLE) SHAMPOO [Concomitant]
  10. BAYER PLUS (ALL OTHER THERAPEUTIC PRODUCTS) [Concomitant]
  11. CENTRUM (CENTRUM) [Concomitant]
  12. CYTOTEC (MISOPROSTOL) CAPSULE [Concomitant]
  13. TRIAMCINOLONE ACETONIDE 0.1% (TRIAMCINOLONE) [Concomitant]
  14. METRONIDAZOLE [Concomitant]
  15. EUCERIN PLUS (ALL OTHER THERAPEUTIC PRODUCTS) LOTION [Concomitant]
  16. VISINE (TETRYZOLINE HYDROCHLORIDE) OPHTHALMIC [Concomitant]

REACTIONS (6)
  - ARTHRALGIA [None]
  - DIABETES MELLITUS [None]
  - EOSINOPHIL COUNT INCREASED [None]
  - MUSCLE TWITCHING [None]
  - SEDATION [None]
  - WEIGHT INCREASED [None]
